FAERS Safety Report 11409174 (Version 1)
Quarter: 2015Q3

REPORT INFORMATION
  Report Type: Spontaneous
  Country: US (occurrence: None)
  Receive Date: 20150820
  Receipt Date: 20150820
  Transmission Date: 20151125
  Serious: Yes (Death, Life-Threatening, Hospitalization)
  Sender: FDA-Public Use
  Company Number: None

PATIENT
  Age: 40 Year
  Sex: Female
  Weight: 70.31 kg

DRUGS (2)
  1. ZOLOFT [Suspect]
     Active Substance: SERTRALINE HYDROCHLORIDE
     Indication: DEPRESSION
     Dosage: MANY YEARS ON ZOLOFT?1, ONCE DAILY, TAKEN BY MOUTH
     Route: 048
  2. ZOLOFT [Suspect]
     Active Substance: SERTRALINE HYDROCHLORIDE
     Indication: ATTENTION DEFICIT/HYPERACTIVITY DISORDER
     Dosage: MANY YEARS ON ZOLOFT?1, ONCE DAILY, TAKEN BY MOUTH
     Route: 048

REACTIONS (16)
  - Yellow skin [None]
  - Bowel movement irregularity [None]
  - Sleep disorder [None]
  - Anger [None]
  - Muscle twitching [None]
  - Hepatic failure [None]
  - Personality change [None]
  - Fatigue [None]
  - Glaucoma [None]
  - Vertigo [None]
  - Haematochezia [None]
  - Bladder disorder [None]
  - Myalgia [None]
  - Abdominal pain upper [None]
  - Hepatic cancer [None]
  - Agitation [None]

NARRATIVE: CASE EVENT DATE: 20150803
